FAERS Safety Report 18236669 (Version 1)
Quarter: 2020Q3

REPORT INFORMATION
  Report Type: Other
  Country: CH (occurrence: CH)
  Receive Date: 20200907
  Receipt Date: 20200907
  Transmission Date: 20201103
  Serious: Yes (Hospitalization, Other)
  Sender: FDA-Public Use
  Company Number: CH-ASTELLAS-2020US029411

PATIENT
  Age: 77 Year
  Sex: Female

DRUGS (12)
  1. VESICARE [Suspect]
     Active Substance: SOLIFENACIN SUCCINATE
     Dosage: 10 MG (TWICE THE USUAL MORNING TREATMENT), UNKNOWN FREQ.
     Route: 048
     Dates: start: 20200702
  2. SEQUASE [Suspect]
     Active Substance: QUETIAPINE FUMARATE
     Dosage: UNK UNK, UNKNOWN FREQ.(REDUCED DOSE)
     Route: 048
  3. CONCOR [Suspect]
     Active Substance: BISOPROLOL FUMARATE
     Indication: PRODUCT USED FOR UNKNOWN INDICATION
     Route: 048
  4. METAMUCIL REGULAR [Suspect]
     Active Substance: HERBALS\PLANTAGO OVATA LEAF
     Indication: PRODUCT USED FOR UNKNOWN INDICATION
     Route: 048
  5. SEQUASE [Suspect]
     Active Substance: QUETIAPINE FUMARATE
     Indication: PRODUCT USED FOR UNKNOWN INDICATION
     Route: 048
  6. CONCOR [Suspect]
     Active Substance: BISOPROLOL FUMARATE
     Dosage: 5 MG (TWICE THE USUAL MORNING TREATMENT), UNKNOWN FREQ.
     Route: 048
     Dates: start: 20200702
  7. SEQUASE [Concomitant]
     Active Substance: QUETIAPINE FUMARATE
     Indication: PRODUCT USED FOR UNKNOWN INDICATION
     Route: 048
     Dates: end: 20200702
  8. VESICARE [Suspect]
     Active Substance: SOLIFENACIN SUCCINATE
     Indication: PRODUCT USED FOR UNKNOWN INDICATION
     Route: 048
  9. DEPAKINE CHRONO [Suspect]
     Active Substance: VALPROATE SODIUM
     Dosage: 1 G (TWICE THE USUAL MORNING TREATMENT), UNKNOWN FREQ.
     Route: 065
     Dates: start: 20200702
  10. SEQUASE [Suspect]
     Active Substance: QUETIAPINE FUMARATE
     Dosage: 200 MG (TWICE THE USUAL MORNING TREATMENT), UNKNOWN FREQ.
     Route: 048
     Dates: start: 20200702
  11. DEPAKINE CHRONO [Suspect]
     Active Substance: VALPROATE SODIUM
     Indication: PRODUCT USED FOR UNKNOWN INDICATION
     Route: 065
  12. METAMUCIL REGULAR [Suspect]
     Active Substance: HERBALS\PLANTAGO OVATA LEAF
     Dosage: 2 DOSES (TWICE THE USUAL MORNING TREATMENT), UNKNOWN FREQ.
     Route: 048
     Dates: start: 20200702

REACTIONS (7)
  - Bronchial wall thickening [Unknown]
  - Oedema peripheral [Unknown]
  - Escherichia urinary tract infection [Unknown]
  - Inflammatory marker increased [Unknown]
  - Pleural effusion [Unknown]
  - Mixed delusion [Recovered/Resolved]
  - Product administration error [Recovered/Resolved]

NARRATIVE: CASE EVENT DATE: 20200702
